FAERS Safety Report 25224940 (Version 1)
Quarter: 2025Q2

REPORT INFORMATION
  Report Type: Spontaneous
  Country: US (occurrence: US)
  Receive Date: 20250422
  Receipt Date: 20250422
  Transmission Date: 20250716
  Serious: No
  Sender: CSL BEHRING
  Company Number: US-BEH-2025202336

PATIENT
  Sex: Female

DRUGS (70)
  1. HIZENTRA [Suspect]
     Active Substance: HUMAN IMMUNOGLOBULIN G
     Indication: Immunodeficiency common variable
     Dosage: 8 G, (4 G/20ML) QOW
     Route: 058
     Dates: start: 20230525
  2. ALPRAZOLAM [Concomitant]
     Active Substance: ALPRAZOLAM
  3. ASPIRIN [Concomitant]
     Active Substance: ASPIRIN
  4. AZELASTINE [Concomitant]
     Active Substance: AZELASTINE
  5. BACLOFEN [Concomitant]
     Active Substance: BACLOFEN
  6. BACLOFEN [Concomitant]
     Active Substance: BACLOFEN
  7. BACLOFEN [Concomitant]
     Active Substance: BACLOFEN
  8. CANNABIDIOL [Concomitant]
     Active Substance: CANNABIDIOL
  9. CELEBREX [Concomitant]
     Active Substance: CELECOXIB
  10. CLARITIN-D NOS [Concomitant]
     Active Substance: LORATADINE\PSEUDOEPHEDRINE SULFATE
  11. CLONAZEPAM [Concomitant]
     Active Substance: CLONAZEPAM
  12. CLONAZEPAM [Concomitant]
     Active Substance: CLONAZEPAM
  13. CLOPIDOGREL [Concomitant]
     Active Substance: CLOPIDOGREL BISULFATE
  14. COENZYME Q10 [Concomitant]
     Active Substance: DIETARY SUPPLEMENT\UBIDECARENONE
  15. COLESEVELAM [Concomitant]
     Active Substance: COLESEVELAM
  16. CURCUMIN [Concomitant]
     Active Substance: CURCUMIN
  17. DESMOPRESSIN [Concomitant]
     Active Substance: DESMOPRESSIN
  18. PRASTERONE [Concomitant]
     Active Substance: PRASTERONE
  19. EPINEPHRINE [Concomitant]
     Active Substance: EPINEPHRINE
  20. ESCITALOPRAM [Concomitant]
     Active Substance: ESCITALOPRAM OXALATE
  21. ESTRADIOL [Concomitant]
     Active Substance: ESTRADIOL
  22. ESTRADIOL [Concomitant]
     Active Substance: ESTRADIOL
  23. ESTRADIOL [Concomitant]
     Active Substance: ESTRADIOL
  24. EZETIMIBE [Concomitant]
     Active Substance: EZETIMIBE
  25. FISH OIL [Concomitant]
     Active Substance: FISH OIL
  26. FLUCONAZOLE [Concomitant]
     Active Substance: FLUCONAZOLE
  27. A-HYDROCORT [Concomitant]
     Active Substance: HYDROCORTISONE SODIUM SUCCINATE
  28. IMVEXXY [Concomitant]
     Active Substance: ESTRADIOL
  29. IRON [Concomitant]
     Active Substance: IRON
  30. KENALOG [Concomitant]
     Active Substance: TRIAMCINOLONE ACETONIDE
  31. KETOROLAC [Concomitant]
     Active Substance: KETOROLAC TROMETHAMINE
  32. LEVALBUTEROL [Concomitant]
     Active Substance: LEVALBUTEROL
  33. LEVALBUTEROL [Concomitant]
     Active Substance: LEVALBUTEROL
  34. LIDOCAINE\PRILOCAINE [Concomitant]
     Active Substance: LIDOCAINE\PRILOCAINE
  35. LORAZEPAM [Concomitant]
     Active Substance: LORAZEPAM
  36. LUMIFY [Concomitant]
     Active Substance: BRIMONIDINE TARTRATE
  37. MAGNESIUM [Concomitant]
     Active Substance: MAGNESIUM
  38. MAXALT-MLT [Concomitant]
     Active Substance: RIZATRIPTAN BENZOATE
  39. MELOXICAM [Concomitant]
     Active Substance: MELOXICAM
  40. METFORMIN [Concomitant]
     Active Substance: METFORMIN HYDROCHLORIDE
  41. METHOCARBAMOL [Concomitant]
     Active Substance: METHOCARBAMOL
  42. METRONIDAZOLE [Concomitant]
     Active Substance: METRONIDAZOLE
  43. MONTELUKAST [Concomitant]
     Active Substance: MONTELUKAST
  44. MOUNJARO [Concomitant]
     Active Substance: TIRZEPATIDE
  45. MOUNJARO [Concomitant]
     Active Substance: TIRZEPATIDE
  46. MOUNJARO [Concomitant]
     Active Substance: TIRZEPATIDE
  47. NALTREXONE [Concomitant]
     Active Substance: NALTREXONE
  48. NASACORT [Concomitant]
     Active Substance: TRIAMCINOLONE ACETONIDE
  49. NATTOKINASE [Concomitant]
     Active Substance: NATTOKINASE
  50. NUCALA [Concomitant]
     Active Substance: MEPOLIZUMAB
  51. OXYTOCIN [Concomitant]
     Active Substance: OXYTOCIN
  52. PATADAY [Concomitant]
     Active Substance: OLOPATADINE HYDROCHLORIDE
  53. PLAVIX [Concomitant]
     Active Substance: CLOPIDOGREL BISULFATE
  54. PREGNENOLONE [Concomitant]
     Active Substance: PREGNENOLONE
  55. MINERALS\VITAMINS [Concomitant]
     Active Substance: MINERALS\VITAMINS
  56. PROBIOTICS NOS [Concomitant]
     Active Substance: PROBIOTICS NOS
     Dosage: UNK, QD
  57. PROGESTERONE [Concomitant]
     Active Substance: PROGESTERONE
  58. PULMICORT TURBUHALER [Concomitant]
     Active Substance: BUDESONIDE
  59. DIETARY SUPPLEMENT\RESVERATROL [Concomitant]
     Active Substance: DIETARY SUPPLEMENT\RESVERATROL
  60. HYALURONATE SODIUM [Concomitant]
     Active Substance: HYALURONATE SODIUM
  61. HYALURONATE SODIUM [Concomitant]
     Active Substance: HYALURONATE SODIUM
  62. SYNTHROID [Concomitant]
     Active Substance: LEVOTHYROXINE SODIUM
  63. TEZSPIRE [Concomitant]
     Active Substance: TEZEPELUMAB-EKKO
  64. TEZSPIRE [Concomitant]
     Active Substance: TEZEPELUMAB-EKKO
  65. TRAZODONE [Concomitant]
     Active Substance: TRAZODONE HYDROCHLORIDE
  66. TRAZODONE [Concomitant]
     Active Substance: TRAZODONE HYDROCHLORIDE
  67. TRELEGY ELLIPTA [Concomitant]
     Active Substance: FLUTICASONE FUROATE\UMECLIDINIUM BROMIDE\VILANTEROL TRIFENATATE
  68. VITAMIN D3 [Concomitant]
     Active Substance: CHOLECALCIFEROL
  69. ZETIA [Concomitant]
     Active Substance: EZETIMIBE
  70. ZYRTEC-D [Concomitant]
     Active Substance: CETIRIZINE HYDROCHLORIDE\PSEUDOEPHEDRINE HYDROCHLORIDE

REACTIONS (2)
  - Aphonia [Unknown]
  - Illness [Unknown]
